FAERS Safety Report 6628542-9 (Version None)
Quarter: 2010Q1

REPORT INFORMATION
  Report Type: 
  Country: None (occurrence: None)
  Receive Date: 20100311
  Receipt Date: 20100303
  Transmission Date: 20100710
  Serious: Yes (Hospitalization)
  Sender: FDA-Public Use
  Company Number: US-ABBOTT-10P-163-0630245-00

PATIENT
  Sex: Male
  Weight: 59.02 kg

DRUGS (3)
  1. HUMIRA [Suspect]
     Indication: RHEUMATOID ARTHRITIS
     Route: 058
     Dates: start: 20080101
  2. METFORMIN [Concomitant]
     Indication: DIABETES MELLITUS
     Route: 048
  3. TRAMADOL HCL [Concomitant]
     Indication: ARTHRALGIA
     Route: 048

REACTIONS (2)
  - CEREBROVASCULAR ACCIDENT [None]
  - INJECTION SITE PAIN [None]
